FAERS Safety Report 25865238 (Version 1)
Quarter: 2025Q3

REPORT INFORMATION
  Report Type: Spontaneous
  Country: JP (occurrence: JP)
  Receive Date: 20250930
  Receipt Date: 20250930
  Transmission Date: 20251020
  Serious: Yes (Other)
  Sender: MERCK SHARP & DOHME LLC
  Company Number: JP-009507513-2333879

PATIENT
  Age: 3 Decade
  Sex: Female

DRUGS (5)
  1. SOTATERCEPT [Suspect]
     Active Substance: SOTATERCEPT
     Route: 058
  2. MACITENTAN [Concomitant]
     Active Substance: MACITENTAN
  3. SILDENAFIL [Concomitant]
     Active Substance: SILDENAFIL
  4. TREPROSTINIL [Concomitant]
     Active Substance: TREPROSTINIL
     Dosage: 4 TIMES DAILY, 3 INHALATIONS ONCE
     Route: 055
  5. EPOPROSTENOL [Concomitant]
     Active Substance: EPOPROSTENOL

REACTIONS (2)
  - Caesarean section [Unknown]
  - Maternal exposure during pregnancy [Unknown]
